FAERS Safety Report 8598364-0 (Version None)
Quarter: 2012Q3

REPORT INFORMATION
  Report Type: 
  Country: None (occurrence: None)
  Receive Date: 20120816
  Receipt Date: 20120806
  Transmission Date: 20120928
  Serious: Yes (Hospitalization)
  Sender: FDA-Public Use
  Company Number: GB-JNJFOC-20120804210

PATIENT
  Sex: Male
  Weight: 60 kg

DRUGS (3)
  1. MODULEN [Concomitant]
  2. AZATHIOPRINE SODIUM [Suspect]
     Indication: CROHN'S DISEASE
  3. REMICADE [Suspect]
     Indication: CROHN'S DISEASE
     Route: 042
     Dates: start: 20111028

REACTIONS (2)
  - PANCREATITIS [None]
  - CROHN'S DISEASE [None]
